FAERS Safety Report 9444198 (Version 1)
Quarter: 2013Q3

REPORT INFORMATION
  Report Type: Spontaneous
  Country: US (occurrence: None)
  Receive Date: 20130806
  Receipt Date: 20130806
  Transmission Date: 20140515
  Serious: Yes (Other)
  Sender: FDA-Public Use
  Company Number: None

PATIENT
  Age: 30 Month
  Sex: Male

DRUGS (2)
  1. ZONEGRAN [Suspect]
     Indication: CONVULSION
     Dosage: 8.5 ML PO BID
     Route: 048
     Dates: start: 20100907
  2. ZONEGRAN [Suspect]
     Indication: CEREBRAL PALSY
     Dosage: 8.5 ML PO BID
     Route: 048
     Dates: start: 20100907

REACTIONS (1)
  - Convulsion [None]
